FAERS Safety Report 11318546 (Version 1)
Quarter: 2015Q3

REPORT INFORMATION
  Report Type: Spontaneous
  Country: US (occurrence: US)
  Receive Date: 20150729
  Receipt Date: 20150729
  Transmission Date: 20151125
  Serious: No
  Sender: FDA-Public Use
  Company Number: US-ASTRAZENECA-2015SE70393

PATIENT
  Age: 66 Year
  Sex: Male

DRUGS (2)
  1. ANTIPLATELET [Concomitant]
     Active Substance: UNSPECIFIED INGREDIENT
  2. CRESTOR [Suspect]
     Active Substance: ROSUVASTATIN CALCIUM
     Dosage: UNKNOWN
     Route: 048
     Dates: end: 201506

REACTIONS (2)
  - Peripheral swelling [Unknown]
  - Arthralgia [Unknown]
